FAERS Safety Report 23671284 (Version 1)
Quarter: 2024Q1

REPORT INFORMATION
  Report Type: Other
  Country: KR (occurrence: None)
  Receive Date: 20240326
  Receipt Date: 20240326
  Transmission Date: 20240410
  Serious: Yes (Other)
  Sender: FDA-Public Use
  Company Number: KR-ROCHE-3530088

PATIENT

DRUGS (2)
  1. BEVACIZUMAB [Suspect]
     Active Substance: BEVACIZUMAB
     Indication: Hepatocellular carcinoma
     Route: 042
  2. ATEZOLIZUMAB [Suspect]
     Active Substance: ATEZOLIZUMAB
     Indication: Hepatocellular carcinoma
     Route: 042

REACTIONS (11)
  - Pneumonitis [Unknown]
  - Asthenia [Unknown]
  - Hypertension [Unknown]
  - Proteinuria [Unknown]
  - Thyroiditis [Unknown]
  - Bleeding varicose vein [Unknown]
  - Hepatic encephalopathy [Unknown]
  - Hepatic function abnormal [Unknown]
  - Bleeding varicose vein [Unknown]
  - Hepatic function abnormal [Unknown]
  - Renal impairment [Unknown]
